FAERS Safety Report 24323973 (Version 1)
Quarter: 2024Q3

REPORT INFORMATION
  Report Type: Spontaneous
  Country: JP (occurrence: JP)
  Receive Date: 20240916
  Receipt Date: 20240916
  Transmission Date: 20241017
  Serious: Yes (Other)
  Sender: INSUD PHARMA
  Company Number: JP-INSUD PHARMA-2409JP06996

PATIENT

DRUGS (6)
  1. ACYCLOVIR [Suspect]
     Active Substance: ACYCLOVIR
     Indication: Viral vasculitis
     Dosage: 1500 MG/D
     Route: 042
  2. PREDNISONE [Concomitant]
     Active Substance: PREDNISONE
     Indication: Vasculitis
     Dosage: 50 MILLIGRAM, QD
  3. PREDNISONE [Concomitant]
     Active Substance: PREDNISONE
     Indication: Varicella zoster virus infection
  4. METHYLPREDNISOLONE [Concomitant]
     Active Substance: METHYLPREDNISOLONE
     Indication: Viral vasculitis
     Dosage: 1000 MILLIGRAM, QD - PULSE THERAPY
  5. CLOPIDOGREL [Concomitant]
     Active Substance: CLOPIDOGREL BISULFATE
     Indication: Thrombosis prophylaxis
     Dosage: 75 MILLIGRAM, QD
  6. APIXABAN [Concomitant]
     Active Substance: APIXABAN
     Indication: Thrombosis prophylaxis
     Dosage: 10 MILLIGRAM, QD

REACTIONS (1)
  - Neutropenia [Unknown]
